FAERS Safety Report 9550804 (Version 1)
Quarter: 2013Q3

REPORT INFORMATION
  Report Type: Spontaneous
  Country: US (occurrence: US)
  Receive Date: 20130924
  Receipt Date: 20130924
  Transmission Date: 20140515
  Serious: No
  Sender: FDA-Public Use
  Company Number: US-SANOFI-AVENTIS-2013SA038277

PATIENT
  Age: 60 Year
  Sex: Male

DRUGS (6)
  1. AUBAGIO [Suspect]
     Indication: MULTIPLE SCLEROSIS
     Route: 048
     Dates: start: 201302
  2. ALPRAZOLAM [Concomitant]
  3. LANSOPRAZOLE [Concomitant]
  4. HYDROMORPHONE [Concomitant]
  5. TESTOSTERONE [Concomitant]
  6. VITAMIN D [Concomitant]

REACTIONS (3)
  - Fall [Unknown]
  - Arthropathy [Unknown]
  - Drug dose omission [Unknown]
